FAERS Safety Report 5324937-4 (Version None)
Quarter: 2007Q2

REPORT INFORMATION
  Report Type: 
  Country: None (occurrence: None)
  Receive Date: 20070515
  Receipt Date: 20060504
  Transmission Date: 20071010
  Serious: Yes (Other)
  Sender: FDA-Public Use
  Company Number: US-BRISTOL-MYERS SQUIBB COMPANY-13368006

PATIENT
  Sex: Female
  Weight: 63 kg

DRUGS (1)
  1. PRONESTYL [Suspect]

REACTIONS (1)
  - LUPUS-LIKE SYNDROME [None]
